FAERS Safety Report 17238132 (Version 1)
Quarter: 2020Q1

REPORT INFORMATION
  Report Type: Spontaneous
  Country: US (occurrence: US)
  Receive Date: 20200106
  Receipt Date: 20200106
  Transmission Date: 20200409
  Serious: Yes (Other)
  Sender: FDA-Public Use
  Company Number: US-PACIRA-201900307

PATIENT

DRUGS (2)
  1. EXPAREL [Suspect]
     Active Substance: BUPIVACAINE
     Indication: NERVE BLOCK
     Dosage: 266 MG, 20 ML VIAL, DILUTED WITH 5 ML OF SALINE
  2. MORPHINE [Concomitant]
     Active Substance: MORPHINE
     Indication: ANALGESIC THERAPY
     Dosage: PATIENT CONTROLLED ANALGESIA PUMP
     Route: 042

REACTIONS (1)
  - Atrial fibrillation [Unknown]
